FAERS Safety Report 5724925-X (Version None)
Quarter: 2008Q2

REPORT INFORMATION
  Report Type: 
  Country: None (occurrence: None)
  Receive Date: 20080430
  Receipt Date: 20080430
  Transmission Date: 20081010
  Serious: Yes (Death)
  Sender: FDA-Public Use
  Company Number: None

PATIENT
  Age: 79 Year
  Sex: Male
  Weight: 81.6475 kg

DRUGS (2)
  1. CELEBREX [Suspect]
     Indication: BACK PAIN
     Dosage: 1 CAPSULE DAILY PO
     Route: 048
     Dates: start: 20061201, end: 20061229
  2. ENDOCET 5/325 MG DUPONT PHARM [Suspect]
     Indication: BACK PAIN
     Dosage: 1-2 CAPSULES EVERY 6 HOURS PO AS NEEDED
     Route: 048

REACTIONS (5)
  - CONVULSION [None]
  - GASTROINTESTINAL HAEMORRHAGE [None]
  - LIVER DISORDER [None]
  - ORGAN FAILURE [None]
  - ULCER [None]
